FAERS Safety Report 5969005-3 (Version None)
Quarter: 2008Q4

REPORT INFORMATION
  Report Type: 
  Country: None (occurrence: None)
  Receive Date: 20081119
  Receipt Date: 20080828
  Transmission Date: 20090506
  Serious: No
  Sender: FDA-Public Use
  Company Number: WAES 0808USA05412

PATIENT
  Age: 73 Year
  Sex: Male

DRUGS (3)
  1. JANUVIA [Suspect]
     Indication: DIABETES MELLITUS
     Dosage: 100 MG/DAILY/PO
     Route: 048
     Dates: start: 20080827
  2. ACTOS [Concomitant]
  3. GLYBURIDE [Concomitant]

REACTIONS (1)
  - BLOOD GLUCOSE FLUCTUATION [None]
